FAERS Safety Report 6534219-0 (Version None)
Quarter: 2010Q1

REPORT INFORMATION
  Report Type: 
  Country: None (occurrence: None)
  Receive Date: 20100112
  Receipt Date: 20091222
  Transmission Date: 20100710
  Serious: Yes (Other)
  Sender: FDA-Public Use
  Company Number: PHHY2009US59707

PATIENT
  Sex: Female

DRUGS (2)
  1. INFLUENZA VIRUS VACCINE - UNKNOWN INN (NVD) [Suspect]
     Indication: IMMUNISATION
  2. DIOVAN [Suspect]

REACTIONS (1)
  - HALLUCINATION [None]
